FAERS Safety Report 8032446-7 (Version None)
Quarter: 2011Q4

REPORT INFORMATION
  Report Type: 
  Country: None (occurrence: None)
  Receive Date: 20111202
  Receipt Date: 20110913
  Transmission Date: 20120403
  Serious: Yes (Hospitalization)
  Sender: FDA-Public Use
  Company Number: PHEH2011US04170

PATIENT

DRUGS (1)
  1. FANAPT [Suspect]

REACTIONS (1)
  - PALPITATIONS [None]
